FAERS Safety Report 6030055-2 (Version None)
Quarter: 2009Q1

REPORT INFORMATION
  Report Type: 
  Country: None (occurrence: None)
  Receive Date: 20090107
  Receipt Date: 20090106
  Transmission Date: 20090719
  Serious: Yes (Other)
  Sender: FDA-Public Use
  Company Number: US-JNJFOC-20081000562

PATIENT
  Sex: Female
  Weight: 113.4 kg

DRUGS (13)
  1. FENTANYL TRANSDERMAL SYSTEM [Suspect]
     Indication: PROCEDURAL PAIN
     Route: 062
  2. FENTANYL TRANSDERMAL SYSTEM [Suspect]
     Indication: PAIN
     Route: 062
  3. DURAGESIC-100 [Suspect]
     Indication: PAIN
     Route: 062
  4. MYLAN [Suspect]
     Indication: PAIN
     Route: 062
  5. EFFEXOR [Concomitant]
     Indication: DEPRESSION
     Route: 048
  6. ZOLOFT [Concomitant]
     Indication: DEPRESSION
     Route: 048
  7. ATIVAN [Concomitant]
     Indication: DEPRESSION
     Route: 048
  8. METFORMIN HCL [Concomitant]
     Indication: DIABETES MELLITUS
     Route: 048
  9. TRAMADOL HCL [Concomitant]
     Dosage: AS NEEDED
     Route: 048
  10. TRAMADOL HCL [Concomitant]
     Indication: PAIN
     Dosage: 50 MG 2 TABLETS, 3 TIMES PER DAY AS NEEDED
     Route: 048
  11. LORAZEPAM [Concomitant]
     Indication: ANXIETY
  12. METOCLOPRAMIDE [Concomitant]
     Indication: NAUSEA
     Dosage: 1 YEAR
  13. TIZANIDINE HCL [Concomitant]
     Indication: PAIN MANAGEMENT

REACTIONS (8)
  - BLOOD CHOLESTEROL INCREASED [None]
  - DIABETES MELLITUS [None]
  - DYSPNOEA [None]
  - INAPPROPRIATE SCHEDULE OF DRUG ADMINISTRATION [None]
  - MUSCLE RIGIDITY [None]
  - MUSCLE SPASMS [None]
  - MUSCULOSKELETAL CHEST PAIN [None]
  - WEIGHT DECREASED [None]
